FAERS Safety Report 6692940-8 (Version None)
Quarter: 2010Q2

REPORT INFORMATION
  Report Type: 
  Country: None (occurrence: None)
  Receive Date: 20100422
  Receipt Date: 20100420
  Transmission Date: 20101027
  Serious: Yes (Life-Threatening, Hospitalization)
  Sender: FDA-Public Use
  Company Number: ZA-TYCO HEALTHCARE/MALLINCKRODT-T201001051

PATIENT
  Sex: Female
  Weight: 72 kg

DRUGS (3)
  1. OPTIRAY 350 [Suspect]
     Indication: SCAN BRAIN
     Dosage: 50 ML, SINGLE
     Route: 042
     Dates: start: 20100415, end: 20100415
  2. PREMARIN [Concomitant]
     Dosage: 1.25 MG, UNK
     Route: 048
     Dates: start: 20100414
  3. PANADO [Concomitant]
     Dosage: UNK
     Route: 048
     Dates: start: 20100415

REACTIONS (1)
  - ANAPHYLACTIC REACTION [None]
